FAERS Safety Report 19908331 (Version 1)
Quarter: 2021Q4

REPORT INFORMATION
  Report Type: Spontaneous
  Country: US (occurrence: US)
  Receive Date: 20211001
  Receipt Date: 20211001
  Transmission Date: 20220303
  Serious: No
  Sender: FDA-Public Use
  Company Number: US-TEIKOKU PHARMA USA-TPU2021-00823

PATIENT
  Sex: Female

DRUGS (1)
  1. LIDOCAINE PATCH [Suspect]
     Active Substance: LIDOCAINE
     Indication: Pain
     Route: 061
     Dates: start: 2007

REACTIONS (3)
  - Insurance issue [Not Recovered/Not Resolved]
  - Product availability issue [Not Recovered/Not Resolved]
  - Inappropriate schedule of product administration [Not Recovered/Not Resolved]
